FAERS Safety Report 9207996 (Version 4)
Quarter: 2013Q4

REPORT INFORMATION
  Report Type: Spontaneous
  Country: US (occurrence: US)
  Receive Date: 20130403
  Receipt Date: 20131016
  Transmission Date: 20140711
  Serious: Yes (Hospitalization, Other)
  Sender: FDA-Public Use
  Company Number: US-B.I. PHARMACEUTICALS,INC./RIDGEFIELD-2013-BI-08815BP

PATIENT
  Sex: Male
  Weight: 136.08 kg

DRUGS (2)
  1. PRADAXA [Suspect]
     Indication: ANTICOAGULANT THERAPY
     Dates: start: 20111024, end: 201301
  2. CLONDIN [Concomitant]

REACTIONS (4)
  - Gastrointestinal haemorrhage [Unknown]
  - Renal haemorrhage [Unknown]
  - Myocardial infarction [Unknown]
  - Ischaemic stroke [Unknown]
